FAERS Safety Report 6334812-4 (Version None)
Quarter: 2009Q3

REPORT INFORMATION
  Report Type: 
  Country: None (occurrence: None)
  Receive Date: 20090831
  Receipt Date: 20090818
  Transmission Date: 20100115
  Serious: Yes (Other)
  Sender: FDA-Public Use
  Company Number: JP-TYCO HEALTHCARE/MALLINCKRODT-T200901564

PATIENT
  Age: 60 Year
  Sex: Male

DRUGS (1)
  1. OPTIRAY 350 [Suspect]
     Indication: COMPUTERISED TOMOGRAM
     Dosage: 85 ML, SINGLE
     Route: 042
     Dates: start: 20090818, end: 20090818

REACTIONS (4)
  - ANAPHYLACTIC SHOCK [None]
  - ASTHENIA [None]
  - CONJUNCTIVAL HYPERAEMIA [None]
  - LARYNGEAL DISORDER [None]
